FAERS Safety Report 5983305-2 (Version None)
Quarter: 2008Q4

REPORT INFORMATION
  Report Type: 
  Country: None (occurrence: None)
  Receive Date: 20081208
  Receipt Date: 20080829
  Transmission Date: 20090506
  Serious: No
  Sender: FDA-Public Use
  Company Number: US-BAYER-200813612BCC

PATIENT
  Age: 59 Year
  Sex: Female
  Weight: 86 kg

DRUGS (5)
  1. ALEVE-D SINUS + COLD [Suspect]
     Indication: SINUSITIS
     Dosage: TOTAL DAILY DOSE: 440 MG  UNIT DOSE: 220 MG
     Route: 048
     Dates: start: 20080827, end: 20080828
  2. PERCOCET [Concomitant]
  3. TOPAMAX [Concomitant]
  4. FUROSEMIDE [Concomitant]
  5. CLONAZEPAM [Concomitant]

REACTIONS (2)
  - HEADACHE [None]
  - VISION BLURRED [None]
